FAERS Safety Report 22064491 (Version 1)
Quarter: 2023Q1

REPORT INFORMATION
  Report Type: Spontaneous
  Country: US (occurrence: US)
  Receive Date: 20230306
  Receipt Date: 20230306
  Transmission Date: 20230418
  Serious: No
  Sender: FDA-Public Use
  Company Number: US-VIIV HEALTHCARE LIMITED-US2023AMR032013

PATIENT
  Sex: Male

DRUGS (1)
  1. RUKOBIA [Suspect]
     Active Substance: FOSTEMSAVIR TROMETHAMINE
     Indication: HIV infection
     Dosage: UNK
     Dates: start: 2020

REACTIONS (1)
  - Nasopharyngitis [Not Recovered/Not Resolved]

NARRATIVE: CASE EVENT DATE: 20230101
